FAERS Safety Report 7825062-0 (Version None)
Quarter: 2011Q4

REPORT INFORMATION
  Report Type: 
  Country: None (occurrence: None)
  Receive Date: 20111019
  Receipt Date: 20110628
  Transmission Date: 20120403
  Serious: No
  Sender: FDA-Public Use
  Company Number: US-BRISTOL-MYERS SQUIBB COMPANY-15748080

PATIENT
  Age: 64 Year
  Sex: Male
  Weight: 104 kg

DRUGS (2)
  1. PRAVASTATIN SODIUM [Concomitant]
  2. AVALIDE [Suspect]
     Indication: HYPERTENSION
     Dates: start: 20101001

REACTIONS (2)
  - SWELLING FACE [None]
  - FLUID RETENTION [None]
